FAERS Safety Report 4928779-0 (Version None)
Quarter: 2006Q1

REPORT INFORMATION
  Report Type: 
  Country: None (occurrence: None)
  Receive Date: 20060301
  Receipt Date: 20060214
  Transmission Date: 20060701
  Serious: Yes (Death, Hospitalization)
  Sender: FDA-Public Use
  Company Number: NL-JNJFOC-20060200721

PATIENT
  Sex: Male
  Weight: 89 kg

DRUGS (8)
  1. TRAMAL [Suspect]
     Indication: ANKYLOSING SPONDYLITIS
     Route: 048
  2. SERETIDE DISKUS [Concomitant]
     Route: 065
  3. SERETIDE DISKUS [Concomitant]
     Route: 065
  4. ACETAZOLAMIDE [Concomitant]
     Route: 065
  5. XATRAL [Concomitant]
     Route: 065
  6. ATROVENT [Concomitant]
     Route: 055
  7. SPIRONOLAKTON [Concomitant]
     Route: 065
  8. VENTOLIN [Concomitant]
     Route: 055

REACTIONS (14)
  - ANEURYSM RUPTURED [None]
  - CIRCULATORY COLLAPSE [None]
  - CONFUSIONAL STATE [None]
  - CONSTIPATION [None]
  - DEATH [None]
  - HAEMOGLOBIN DECREASED [None]
  - HEART RATE INCREASED [None]
  - HYPOTENSION [None]
  - INTESTINAL ISCHAEMIA [None]
  - MALAISE [None]
  - MUSCULAR WEAKNESS [None]
  - PITTING OEDEMA [None]
  - SOMNOLENCE [None]
  - URINARY RETENTION [None]
